FAERS Safety Report 24285042 (Version 1)
Quarter: 2024Q3

REPORT INFORMATION
  Report Type: Spontaneous
  Country: CN (occurrence: None)
  Receive Date: 20240905
  Receipt Date: 20240905
  Transmission Date: 20241017
  Serious: Yes (Hospitalization)
  Sender: ASTRAZENECA
  Company Number: 2024A198434

PATIENT
  Age: 25199 Day
  Sex: Male

DRUGS (2)
  1. OSIMERTINIB MESYLATE [Suspect]
     Active Substance: OSIMERTINIB MESYLATE
     Indication: Pulmonary embolism
     Route: 048
     Dates: start: 20240728, end: 20240730
  2. RIVAROXABAN [Suspect]
     Active Substance: RIVAROXABAN
     Indication: Neoplasm prophylaxis
     Route: 048
     Dates: start: 20240728, end: 20240730

REACTIONS (1)
  - Haematuria [Recovered/Resolved]

NARRATIVE: CASE EVENT DATE: 20240730
